FAERS Safety Report 5420244-X (Version None)
Quarter: 2007Q3

REPORT INFORMATION
  Report Type: 
  Country: None (occurrence: None)
  Receive Date: 20070815
  Receipt Date: 20070806
  Transmission Date: 20080115
  Serious: Yes (Hospitalization)
  Sender: FDA-Public Use
  Company Number: 2007JP003524

PATIENT
  Age: 84 Year
  Sex: Female
  Weight: 49.5 kg

DRUGS (6)
  1. VESICARE [Suspect]
     Indication: HYPERTONIC BLADDER
     Dosage: 5 MG, UID/QD, ORAL
     Route: 048
     Dates: start: 20070306, end: 20070713
  2. BEHYD-R. A (RESERPINE, CARBAZOCHROME, BENZYLHYDROCHLORTHIAZIDE) [Suspect]
     Indication: ESSENTIAL HYPERTENSION
     Dosage: 4 MG, UID/QD, ORAL
     Route: 048
     Dates: start: 20020112, end: 20070713
  3. LIPITOR [Concomitant]
  4. BALANCE (CHLORDIAZEPOXIDE HYDROCHLORIDE) [Concomitant]
  5. LANSOPRAZOLE [Concomitant]
  6. CHOLEXAMIN (NICOMOL) [Concomitant]

REACTIONS (1)
  - HYPOTENSION [None]
